FAERS Safety Report 19721036 (Version 2)
Quarter: 2023Q1

REPORT INFORMATION
  Report Type: Spontaneous
  Country: DE (occurrence: DE)
  Receive Date: 20210819
  Receipt Date: 20230225
  Transmission Date: 20230418
  Serious: Yes (Life-Threatening, Other)
  Sender: FDA-Public Use
  Company Number: DE-BRISTOL-MYERS SQUIBB COMPANY-BMS-2021-075904

PATIENT
  Age: 59 Year
  Sex: Male

DRUGS (5)
  1. CARBOPLATIN [Suspect]
     Active Substance: CARBOPLATIN
     Indication: Non-small cell lung cancer
     Dosage: 465 MG, (EVERY 22 DAYS)
     Route: 042
     Dates: start: 20210528, end: 20210622
  2. PACLITAXEL [Suspect]
     Active Substance: PACLITAXEL
     Indication: Non-small cell lung cancer
     Dosage: 465 MG, (EVERY 22 DAYS)
     Route: 042
     Dates: start: 20210528, end: 20210622
  3. NIVOLUMAB [Suspect]
     Active Substance: NIVOLUMAB
     Indication: Non-small cell lung cancer
     Dosage: 360 MG, (EVERY 22 DAYS)
     Route: 042
     Dates: start: 20210528, end: 20210728
  4. IPILIMUMAB [Suspect]
     Active Substance: IPILIMUMAB
     Indication: Non-small cell lung cancer
     Dosage: 75 MG, (EVERY 22 DAYS)
     Route: 042
     Dates: start: 20210528, end: 20210728
  5. PREDNISOLONE [Concomitant]
     Active Substance: PREDNISOLONE
     Indication: Product used for unknown indication
     Dosage: 360 MG
     Route: 042
     Dates: start: 20210528, end: 20210728

REACTIONS (2)
  - Immune-mediated lung disease [Not Recovered/Not Resolved]
  - Intentional product use issue [Unknown]

NARRATIVE: CASE EVENT DATE: 20210528
